FAERS Safety Report 5245961-6 (Version None)
Quarter: 2007Q1

REPORT INFORMATION
  Report Type: 
  Country: None (occurrence: None)
  Receive Date: 20070221
  Receipt Date: 20070214
  Transmission Date: 20070707
  Serious: Yes (Life-Threatening)
  Sender: FDA-Public Use
  Company Number: 152731ISR

PATIENT
  Age: 68 Year
  Sex: Female

DRUGS (6)
  1. CARBOPLATIN [Suspect]
     Indication: OVARIAN CANCER METASTATIC
     Dosage: 450 MG (10 MG/ML) INTRAVENOUS (NOT OTHERWISE SPECIFIED)
     Route: 042
     Dates: start: 20070201, end: 20070201
  2. SODIUM CHLORIDE [Concomitant]
  3. DILTIAZEM HYDROCHLORIDE [Concomitant]
  4. ANTIEMETICS AND ANTINAUSEANTS [Concomitant]
  5. CORTICOSTEROIDS NOS [Concomitant]
  6. ANTIHISTAMINES [Concomitant]

REACTIONS (2)
  - ANGINA PECTORIS [None]
  - CARDIAC ARREST [None]
